FAERS Safety Report 5676070-X (Version None)
Quarter: 2008Q1

REPORT INFORMATION
  Report Type: 
  Country: None (occurrence: None)
  Receive Date: 20080321
  Receipt Date: 20080317
  Transmission Date: 20080703
  Serious: Yes (Other)
  Sender: FDA-Public Use
  Company Number: US-JNJFOC-20080106479

PATIENT
  Sex: Female
  Weight: 63.5 kg

DRUGS (12)
  1. LEVAQUIN [Suspect]
     Indication: INFECTION
     Route: 048
  2. LEVAQUIN [Suspect]
     Indication: KIDNEY INFECTION
     Route: 048
  3. LEVAQUIN [Suspect]
     Indication: URINARY TRACT INFECTION
     Route: 048
  4. LEVAQUIN [Suspect]
     Route: 042
  5. VICODIN [Concomitant]
     Route: 065
  6. PREMPRO [Concomitant]
     Route: 065
  7. CALCITONIN SALMON SYNTHETIC [Concomitant]
     Route: 065
  8. CALCIUM [Concomitant]
     Route: 065
  9. FLUCONAZOLE [Concomitant]
     Route: 065
  10. ALAVERT [Concomitant]
     Route: 065
  11. ZETIA [Concomitant]
     Route: 065
  12. HORMONE REPLACEMENT THERAPY [Concomitant]
     Route: 065

REACTIONS (9)
  - ASTHENIA [None]
  - DYSPNOEA [None]
  - FORMICATION [None]
  - HEMIPLEGIA [None]
  - NEURALGIA [None]
  - PAIN IN EXTREMITY [None]
  - PERIORBITAL OEDEMA [None]
  - PRESYNCOPE [None]
  - TENDON PAIN [None]
